FAERS Safety Report 6015247-0 (Version None)
Quarter: 2008Q4

REPORT INFORMATION
  Report Type: 
  Country: None (occurrence: None)
  Receive Date: 20081222
  Receipt Date: 20081215
  Transmission Date: 20090506
  Serious: Yes (Death)
  Sender: FDA-Public Use
  Company Number: US-PFIZER INC-2008153586

PATIENT
  Age: 46 Year
  Sex: Male

DRUGS (4)
  1. AMLODIPINE BESYLATE [Suspect]
     Dosage: 10 MG, UNK
     Route: 048
  2. DILTIAZEM HCL [Suspect]
     Dosage: 240 MG, UNK
     Route: 048
  3. LORATADINE [Suspect]
     Route: 048
  4. LABETALOL [Suspect]
     Dosage: 400 MG, UNK
     Route: 048

REACTIONS (1)
  - MULTIPLE DRUG OVERDOSE ACCIDENTAL [None]
